FAERS Safety Report 8025850-4 (Version None)
Quarter: 2012Q1

REPORT INFORMATION
  Report Type: 
  Country: None (occurrence: None)
  Receive Date: 20120105
  Receipt Date: 20111227
  Transmission Date: 20120608
  Serious: Yes (Other)
  Sender: FDA-Public Use
  Company Number: CHPA2011US018942

PATIENT
  Age: 58 Year
  Sex: Female

DRUGS (3)
  1. VOLTAREN-XR [Suspect]
     Indication: OSTEOARTHRITIS
     Dosage: 75 MG, UNK
     Route: 048
  2. DICLOFENAC SODIUM [Suspect]
     Indication: OSTEOARTHRITIS
     Dosage: UNK, UNK
     Route: 048
  3. VOLTAREN [Suspect]
     Indication: OSTEOARTHRITIS
     Dosage: ABOUT AN INCH, QD
     Route: 061

REACTIONS (4)
  - OFF LABEL USE [None]
  - THERAPEUTIC RESPONSE UNEXPECTED [None]
  - UNDERDOSE [None]
  - DIVERTICULITIS [None]
